FAERS Safety Report 4991008-6 (Version None)
Quarter: 2006Q2

REPORT INFORMATION
  Report Type: 
  Country: None (occurrence: None)
  Receive Date: 20060503
  Receipt Date: 20060220
  Transmission Date: 20061013
  Serious: Yes (Other)
  Sender: FDA-Public Use
  Company Number: US-MERCK-0602USA04854

PATIENT
  Age: 77 Year
  Sex: Female

DRUGS (11)
  1. REMICADE [Concomitant]
     Route: 042
  2. RELAFEN [Concomitant]
     Route: 065
  3. FOLIC ACID [Concomitant]
     Route: 065
  4. OS-CAL 500 + D [Concomitant]
     Route: 065
  5. VITAMINS (UNSPECIFIED) [Concomitant]
     Route: 065
  6. FOSAMAX [Suspect]
     Indication: OSTEOPOROSIS
     Route: 048
  7. TYLENOL (CAPLET) [Concomitant]
     Route: 065
  8. ASPIRIN [Concomitant]
     Route: 065
  9. METHOTREXATE [Concomitant]
     Route: 065
  10. TOPROL-XL [Concomitant]
     Route: 065
  11. LOTENSIN [Concomitant]
     Route: 065

REACTIONS (2)
  - BONE LESION [None]
  - PULPITIS DENTAL [None]
